FAERS Safety Report 16051953 (Version 1)
Quarter: 2019Q1

REPORT INFORMATION
  Report Type: Spontaneous
  Country: US (occurrence: US)
  Receive Date: 20190308
  Receipt Date: 20190308
  Transmission Date: 20190418
  Serious: Yes (Other)
  Sender: FDA-Public Use
  Company Number: US-ASTRAZENECA-2019SE35590

PATIENT

DRUGS (1)
  1. BRILINTA [Suspect]
     Active Substance: TICAGRELOR
     Route: 048

REACTIONS (7)
  - Low density lipoprotein increased [Unknown]
  - Myocardial infarction [Unknown]
  - Myalgia [Unknown]
  - Dyspnoea [Unknown]
  - Insomnia [Unknown]
  - Skin burning sensation [Unknown]
  - Asthenia [Unknown]
